FAERS Safety Report 21533905 (Version 2)
Quarter: 2025Q2

REPORT INFORMATION
  Report Type: Report from Study
  Country: NL (occurrence: NL)
  Receive Date: 20221101
  Receipt Date: 20250522
  Transmission Date: 20250716
  Serious: Yes (Death, Other)
  Sender: PFIZER
  Company Number: NL-PFIZER INC-PV202200085265

PATIENT

DRUGS (2)
  1. RITUXIMAB [Suspect]
     Active Substance: RITUXIMAB
     Indication: Allogenic stem cell transplantation
  2. HUMAN IMMUNOGLOBULIN G [Suspect]
     Active Substance: HUMAN IMMUNOGLOBULIN G
     Indication: Autologous haematopoietic stem cell transplant
     Route: 042

REACTIONS (3)
  - Meningitis bacterial [Fatal]
  - Hypogammaglobulinaemia [Fatal]
  - Combined immunodeficiency [Not Recovered/Not Resolved]
